FAERS Safety Report 9791898 (Version 8)
Quarter: 2014Q3

REPORT INFORMATION
  Report Type: Report from Study
  Country: US (occurrence: US)
  Receive Date: 20140102
  Receipt Date: 20140811
  Transmission Date: 20150326
  Serious: Yes (Hospitalization, Other)
  Sender: FDA-Public Use
  Company Number: US-SA-2013SA118348

PATIENT
  Age: 47 Year
  Sex: Female

DRUGS (8)
  1. AUBAGIO [Suspect]
     Active Substance: TERIFLUNOMIDE
     Indication: MULTIPLE SCLEROSIS
     Route: 048
     Dates: start: 20131028
  2. DOCUSATE [Concomitant]
     Active Substance: DOCUSATE
     Indication: GASTROINTESTINAL MOTILITY DISORDER
     Dates: start: 20131114
  3. FERROUS SULFATE [Concomitant]
     Active Substance: FERROUS SULFATE\FERROUS SULFATE, DRIED
     Indication: ANAEMIA
     Dosage: 1 MONTH AGO?STRENGTH: 5 GR
     Dates: start: 20131114
  4. VITAMIN D [Concomitant]
     Active Substance: CHOLECALCIFEROL
     Indication: VITAMIN SUPPLEMENTATION
     Dosage: STRENGTH: 1000
     Dates: start: 20140108
  5. PROTONIX [Concomitant]
     Active Substance: PANTOPRAZOLE SODIUM
     Indication: NAUSEA
     Dates: start: 20131215
  6. AUBAGIO [Suspect]
     Active Substance: TERIFLUNOMIDE
     Indication: MULTIPLE SCLEROSIS
     Route: 065
     Dates: start: 201311, end: 20140514
  7. LEVETIRACETAM. [Concomitant]
     Active Substance: LEVETIRACETAM
     Indication: CONVULSION
     Dosage: 3 MONTHS?STRENGTH: 500  MG
  8. OXCARBAZEPINE. [Concomitant]
     Active Substance: OXCARBAZEPINE
     Indication: CONVULSION
     Dosage: STRENGTH: 300 MG
     Dates: start: 20130115

REACTIONS (10)
  - Unevaluable event [Unknown]
  - Multiple sclerosis relapse [Not Recovered/Not Resolved]
  - Convulsion [Not Recovered/Not Resolved]
  - Paraesthesia [Unknown]
  - Speech disorder [Unknown]
  - Therapeutic response changed [Recovering/Resolving]
  - Hemiplegia [Unknown]
  - Type 2 diabetes mellitus [Not Recovered/Not Resolved]
  - Brain neoplasm [Unknown]
  - Facial spasm [Unknown]

NARRATIVE: CASE EVENT DATE: 2014
